FAERS Safety Report 10074429 (Version 1)
Quarter: 2014Q2

REPORT INFORMATION
  Report Type: Spontaneous
  Country: US (occurrence: US)
  Receive Date: 20140411
  Receipt Date: 20140411
  Transmission Date: 20141212
  Serious: No
  Sender: FDA-Public Use
  Company Number: US-SANOFI-AVENTIS-2013SA083878

PATIENT
  Age: 61 Year
  Sex: Female

DRUGS (6)
  1. ALLEGRA-D, 12 HR [Suspect]
     Dosage: FEXOFENADINE HYDROCHLOROTHIAZIDE 60 MG?PSEUDOEPHEDRINE HYDROCHLOROTHIAZIDE 120 MG
     Route: 048
     Dates: start: 20130806
  2. MULTIVITAMINS [Concomitant]
  3. VITAMIN D [Concomitant]
  4. VITAMIN K [Concomitant]
  5. VITAMIN C [Concomitant]
  6. CALCIUM [Concomitant]

REACTIONS (7)
  - Feeling abnormal [Not Recovered/Not Resolved]
  - Memory impairment [Not Recovered/Not Resolved]
  - Dry mouth [Not Recovered/Not Resolved]
  - Polydipsia [Not Recovered/Not Resolved]
  - Pollakiuria [Not Recovered/Not Resolved]
  - Therapeutic response decreased [Unknown]
  - Inappropriate schedule of drug administration [Unknown]
